FAERS Safety Report 19818587 (Version 1)
Quarter: 2021Q3

REPORT INFORMATION
  Report Type: Spontaneous
  Country: US (occurrence: US)
  Receive Date: 20210912
  Receipt Date: 20210912
  Transmission Date: 20211014
  Serious: No
  Sender: FDA-Public Use
  Company Number: US-ASTRAZENECA-2021A706802

PATIENT
  Sex: Male

DRUGS (1)
  1. FARXIGA [Suspect]
     Active Substance: DAPAGLIFLOZIN PROPANEDIOL
     Indication: ACUTE LEFT VENTRICULAR FAILURE
     Route: 048
     Dates: start: 20210712, end: 20210830

REACTIONS (2)
  - Dysphonia [Unknown]
  - Pharyngitis [Unknown]
